FAERS Safety Report 14042360 (Version 2)
Quarter: 2017Q4

REPORT INFORMATION
  Report Type: Spontaneous
  Country: US (occurrence: US)
  Receive Date: 20171004
  Receipt Date: 20171005
  Transmission Date: 20180321
  Serious: No
  Sender: FDA-Public Use
  Company Number: US-BAYER-2017-189845

PATIENT
  Sex: Female

DRUGS (2)
  1. SYNTHROID [Concomitant]
     Active Substance: LEVOTHYROXINE SODIUM
  2. MIRALAX [Suspect]
     Active Substance: POLYETHYLENE GLYCOL 3350
     Indication: GASTROINTESTINAL DISORDER
     Dosage: 1 DF, BID
     Route: 048
     Dates: start: 201709

REACTIONS (6)
  - Product use issue [Unknown]
  - Throat irritation [Recovered/Resolved]
  - Dyspepsia [Recovered/Resolved]
  - Inappropriate prescribing [Unknown]
  - Inappropriate prescribing [Unknown]
  - Flatulence [Unknown]

NARRATIVE: CASE EVENT DATE: 201709
